FAERS Safety Report 5404002-8 (Version None)
Quarter: 2007Q3

REPORT INFORMATION
  Report Type: 
  Country: None (occurrence: None)
  Receive Date: 20070802
  Receipt Date: 20070727
  Transmission Date: 20080115
  Serious: Yes (Other)
  Sender: FDA-Public Use
  Company Number: B0481654B

PATIENT

DRUGS (6)
  1. CEFAZOLIN [Suspect]
     Indication: DRUG USE FOR UNKNOWN INDICATION
     Dates: start: 20070720, end: 20070720
  2. LACTEC [Concomitant]
     Dates: start: 20070720
  3. SODIUM CHLORIDE 0.9% [Concomitant]
     Dates: start: 20070720
  4. POLARAMINE [Concomitant]
     Dates: start: 20070720
  5. ZANTAC 150 [Concomitant]
     Route: 065
     Dates: start: 20070720
  6. BOSMIN [Concomitant]
     Route: 065

REACTIONS (2)
  - DRUG EXPOSURE DURING PREGNANCY [None]
  - FOETAL HEART RATE ABNORMAL [None]
